FAERS Safety Report 5743244-9 (Version None)
Quarter: 2008Q2

REPORT INFORMATION
  Report Type: 
  Country: None (occurrence: None)
  Receive Date: 20080519
  Receipt Date: 20070604
  Transmission Date: 20081010
  Serious: Yes (Hospitalization)
  Sender: FDA-Public Use
  Company Number: FR-GILEAD-2007-0012376

PATIENT
  Sex: Male
  Weight: 71 kg

DRUGS (11)
  1. VIREAD [Suspect]
     Indication: HIV INFECTION
     Route: 048
     Dates: start: 20010530, end: 20030416
  2. HEPSERA [Suspect]
     Indication: HEPATITIS B
     Route: 048
     Dates: start: 20000101, end: 20020101
  3. HEPSERA [Suspect]
     Route: 048
     Dates: start: 20030401, end: 20041101
  4. HEPSERA [Suspect]
     Route: 048
     Dates: start: 20041101, end: 20050202
  5. KALETRA [Concomitant]
     Indication: HIV INFECTION
     Route: 048
     Dates: start: 19981215, end: 20021002
  6. KALETRA [Concomitant]
     Route: 048
     Dates: start: 20031229, end: 20040505
  7. EPIVIR [Concomitant]
     Indication: HIV INFECTION
     Route: 048
     Dates: start: 19970304
  8. NORVIR [Concomitant]
     Indication: HIV INFECTION
     Route: 048
     Dates: start: 20000209, end: 20030416
  9. ZIAGEN [Concomitant]
     Indication: HIV INFECTION
     Route: 048
     Dates: start: 20021119, end: 20030416
  10. TELZIR [Concomitant]
     Indication: HIV INFECTION
     Dates: start: 20030311, end: 20030416
  11. ZERIT [Concomitant]
     Indication: HIV INFECTION
     Dates: start: 19980205, end: 20001114

REACTIONS (1)
  - TUBULOINTERSTITIAL NEPHRITIS [None]
